FAERS Safety Report 23946880 (Version 1)
Quarter: 2024Q2

REPORT INFORMATION
  Report Type: Spontaneous
  Country: FR (occurrence: None)
  Receive Date: 20240606
  Receipt Date: 20240606
  Transmission Date: 20240716
  Serious: Yes (Hospitalization)
  Sender: FDA-Public Use
  Company Number: 2024A130600

PATIENT
  Age: 78 Year
  Sex: Female
  Weight: 57 kg

DRUGS (7)
  1. OMEPRAZOLE [Suspect]
     Active Substance: DONEPEZIL HYDROCHLORIDE\OMEPRAZOLE\OMEPRAZOLE MAGNESIUM
     Indication: Gastrooesophageal reflux disease
     Route: 048
     Dates: start: 20240429, end: 20240506
  2. ELIQUIS [Suspect]
     Active Substance: APIXABAN
     Indication: Anticoagulant therapy
     Dosage: 1 CP MORNING AND 1 CP EVENING
     Route: 048
     Dates: start: 20240429
  3. CELEBREX [Suspect]
     Active Substance: CELECOXIB
     Indication: Analgesic intervention supportive therapy
     Dosage: 200MG MORNING AND EVENING
     Route: 048
     Dates: start: 20240429
  4. NEFOPAM [Suspect]
     Active Substance: NEFOPAM
     Indication: Analgesic intervention supportive therapy
     Dosage: 1 AMPOULE EVERY 4 HOURS ON SUGAR
     Route: 048
     Dates: start: 20240429, end: 20240506
  5. MORPHINE SULFATE [Concomitant]
     Active Substance: MORPHINE SULFATE
     Dosage: 1 CAPSULE EVERY 6 HOURS FOR 24 HOURS
     Route: 048
     Dates: start: 20240429, end: 20240430
  6. BISOPROLOL [Concomitant]
     Active Substance: BISOPROLOL\BISOPROLOL FUMARATE
     Indication: Ocular hypertension
     Dosage: 1 CAPSULE EVERY 6 HOURS FOR 24 HOURS
     Route: 048
     Dates: start: 20240429, end: 20240430
  7. DORZOLAMIDE HYDROCHLORIDE\TIMOLOL MALEATE [Concomitant]
     Active Substance: DORZOLAMIDE HYDROCHLORIDE\TIMOLOL MALEATE
     Indication: Ocular hypertension
     Dosage: EYE DROPS SOLUTION, 1 GTT IN THE MORNING AND 1 GTT IN THE EVENING
     Route: 047
     Dates: start: 20240429, end: 20240430

REACTIONS (1)
  - Mixed liver injury [Recovering/Resolving]

NARRATIVE: CASE EVENT DATE: 20240506
